FAERS Safety Report 4423630-X (Version None)
Quarter: 2004Q3

REPORT INFORMATION
  Report Type: 
  Country: None (occurrence: None)
  Receive Date: 20040805
  Receipt Date: 20040723
  Transmission Date: 20050211
  Serious: Yes (Other)
  Sender: FDA-Public Use
  Company Number: 2004050537

PATIENT
  Age: 7 Year
  Sex: Male

DRUGS (3)
  1. ZYRTEC [Suspect]
     Indication: HYPERSENSITIVITY
     Dosage: ORAL
     Route: 048
  2. BETAMETHASONE [Suspect]
     Indication: ILL-DEFINED DISORDER
  3. BECLOMETHASONE DIPROPIONATE (BECLOMETHASONE DIPROPIONATE) [Suspect]
     Indication: ILL-DEFINED DISORDER

REACTIONS (2)
  - DENTAL CARIES [None]
  - TOOTH HYPOPLASIA [None]
